FAERS Safety Report 15953149 (Version 1)
Quarter: 2019Q1

REPORT INFORMATION
  Report Type: Spontaneous
  Country: FR (occurrence: FR)
  Receive Date: 20190212
  Receipt Date: 20190212
  Transmission Date: 20190417
  Serious: Yes (Death, Hospitalization, Other)
  Sender: FDA-Public Use
  Company Number: FR-BAYER-2019-025324

PATIENT
  Age: 52 Year
  Sex: Male

DRUGS (2)
  1. STIVARGA [Suspect]
     Active Substance: REGORAFENIB
     Indication: COLORECTAL CANCER
     Dosage: 120 MG, QD
     Dates: start: 201506
  2. STIVARGA [Suspect]
     Active Substance: REGORAFENIB
     Indication: GENE MUTATION
     Dosage: 120 MG, QD
     Dates: end: 201603

REACTIONS (5)
  - Death [Fatal]
  - Metastases to peritoneum [None]
  - Venoocclusive liver disease [None]
  - Off label use [None]
  - Palmar-plantar erythrodysaesthesia syndrome [None]

NARRATIVE: CASE EVENT DATE: 201506
